FAERS Safety Report 8829718 (Version 2)
Quarter: 2015Q3

REPORT INFORMATION
  Report Type: Report from Study
  Country: US (occurrence: US)
  Receive Date: 20121008
  Receipt Date: 20150806
  Transmission Date: 20151125
  Serious: Yes (Death)
  Sender: FDA-Public Use
  Company Number: US-ROCHE-1130644

PATIENT
  Age: 58 Year
  Sex: Male
  Weight: 82.17 kg

DRUGS (24)
  1. RITUXAN [Suspect]
     Active Substance: RITUXIMAB
     Indication: CHRONIC LYMPHOCYTIC LEUKAEMIA
     Dosage: 07/FEB/2001, 07/MAR/2001, 04/APR/2001, 02/MAY/2001
     Route: 042
     Dates: start: 20010111
  2. TYLENOL [Concomitant]
     Active Substance: ACETAMINOPHEN
     Route: 048
  3. CYTOXAN [Concomitant]
     Active Substance: CYCLOPHOSPHAMIDE
     Route: 065
     Dates: start: 20010207
  4. ZITHROMAX [Concomitant]
     Active Substance: AZITHROMYCIN DIHYDRATE
  5. BENADRYL [Concomitant]
     Active Substance: DIPHENHYDRAMINE HYDROCHLORIDE
     Route: 048
  6. DECADRON [Concomitant]
     Active Substance: DEXAMETHASONE
     Route: 065
     Dates: start: 20010207
  7. VALTREX [Concomitant]
     Active Substance: VALACYCLOVIR HYDROCHLORIDE
     Route: 065
  8. TYLENOL [Concomitant]
     Active Substance: ACETAMINOPHEN
     Route: 065
     Dates: start: 20010207
  9. ADVIL [Concomitant]
     Active Substance: IBUPROFEN
     Route: 065
  10. BACTRIM [Concomitant]
     Active Substance: SULFAMETHOXAZOLE\TRIMETHOPRIM
     Dosage: ON SATURDAY AND SUNDAY
     Route: 065
  11. PROCRIT [Concomitant]
     Active Substance: ERYTHROPOIETIN
     Route: 065
  12. RITUXAN [Suspect]
     Active Substance: RITUXIMAB
     Dosage: 27/FEB/2002, 06/MAR/2002, 13/MAR/2002, 25/APR/2002, 02/MAY/2002, 09/MAY/2002, 16/MAY/2002
     Route: 042
     Dates: start: 20020220
  13. DOXEPIN [Concomitant]
     Active Substance: DOXEPIN
     Dosage: P.R.N.
     Route: 065
  14. LASIX [Concomitant]
     Active Substance: FUROSEMIDE
     Route: 065
  15. DEMEROL [Concomitant]
     Active Substance: MEPERIDINE HYDROCHLORIDE
     Route: 042
  16. PROCRIT [Concomitant]
     Active Substance: ERYTHROPOIETIN
     Route: 065
  17. DOXEPIN [Concomitant]
     Active Substance: DOXEPIN
     Route: 065
  18. COMPAZINE [Concomitant]
     Active Substance: PROCHLORPERAZINE MALEATE
     Route: 065
  19. ACETAMINOPHEN. [Concomitant]
     Active Substance: ACETAMINOPHEN
     Route: 065
  20. BENADRYL [Concomitant]
     Active Substance: DIPHENHYDRAMINE HYDROCHLORIDE
     Route: 042
     Dates: start: 20010207
  21. ZOFRAN [Concomitant]
     Active Substance: ONDANSETRON HYDROCHLORIDE
     Route: 042
     Dates: start: 20010207
  22. FLUDARABINE PHOSPHATE. [Concomitant]
     Active Substance: FLUDARABINE PHOSPHATE
     Route: 065
     Dates: start: 20010207
  23. VALTREX [Concomitant]
     Active Substance: VALACYCLOVIR HYDROCHLORIDE
     Route: 065
  24. BACTRIM [Concomitant]
     Active Substance: SULFAMETHOXAZOLE\TRIMETHOPRIM
     Dosage: 12 MG AT 9 PM AND 16 AT 3 AM
     Route: 065

REACTIONS (11)
  - Death [Fatal]
  - Anaemia [Unknown]
  - Sinus headache [Unknown]
  - Pyrexia [Recovered/Resolved]
  - Lymphadenopathy [Recovered/Resolved]
  - Fatigue [Unknown]
  - White blood cell count decreased [Unknown]
  - Upper-airway cough syndrome [Unknown]
  - Nocturia [Unknown]
  - Chills [Unknown]
  - Oropharyngeal pain [Recovered/Resolved]

NARRATIVE: CASE EVENT DATE: 20020220
